FAERS Safety Report 5123034-0 (Version None)
Quarter: 2006Q4

REPORT INFORMATION
  Report Type: 
  Country: None (occurrence: None)
  Receive Date: 20061004
  Receipt Date: 20061004
  Transmission Date: 20070319
  Serious: Yes (Hospitalization)
  Sender: FDA-Public Use
  Company Number: None

PATIENT
  Age: 56 Year
  Sex: Male
  Weight: 86 kg

DRUGS (1)
  1. OLANZAPINE [Suspect]
     Indication: SCHIZOPHRENIA
     Dosage: 15MG BY MOUTH DAILY
     Route: 048
     Dates: start: 20060622

REACTIONS (2)
  - BLOOD SODIUM DECREASED [None]
  - GRAND MAL CONVULSION [None]
